FAERS Safety Report 20233222 (Version 3)
Quarter: 2022Q1

REPORT INFORMATION
  Report Type: Report from Study
  Country: US (occurrence: US)
  Receive Date: 20211227
  Receipt Date: 20220113
  Transmission Date: 20220423
  Serious: Yes (Other)
  Sender: FDA-Public Use
  Company Number: US-NOVARTISPH-NVSC2021US293604

PATIENT
  Sex: Female

DRUGS (3)
  1. TABRECTA [Suspect]
     Active Substance: CAPMATINIB
     Indication: Lung carcinoma cell type unspecified stage 0
     Dosage: UNK
     Route: 065
  2. TABRECTA [Suspect]
     Active Substance: CAPMATINIB
     Dosage: 400 MG, BID
     Route: 048
  3. TABRECTA [Suspect]
     Active Substance: CAPMATINIB
     Dosage: 200 MG, BID
     Route: 048

REACTIONS (2)
  - Lung neoplasm malignant [Unknown]
  - Diarrhoea [Recovered/Resolved]
